FAERS Safety Report 11824244 (Version 1)
Quarter: 2015Q4

REPORT INFORMATION
  Report Type: Spontaneous
  Country: US (occurrence: US)
  Receive Date: 20151210
  Receipt Date: 20151210
  Transmission Date: 20160305
  Serious: No
  Sender: FDA-Public Use
  Company Number: US-LPDUSPRD-20150785

PATIENT
  Sex: Female

DRUGS (1)
  1. VENOFER [Suspect]
     Active Substance: IRON SUCROSE
     Dosage: 333 MG FOR 3 INFUSIONS
     Route: 042

REACTIONS (3)
  - Chromaturia [Recovered/Resolved]
  - Headache [Recovered/Resolved]
  - Renal pain [Recovered/Resolved]
